FAERS Safety Report 5767888-3 (Version None)
Quarter: 2008Q2

REPORT INFORMATION
  Report Type: 
  Country: None (occurrence: None)
  Receive Date: 20080601
  Receipt Date: 20080303
  Transmission Date: 20081010
  Serious: No
  Sender: FDA-Public Use
  Company Number: US200802005950

PATIENT
  Age: 43 Year
  Sex: Female
  Weight: 112.5 kg

DRUGS (8)
  1. BYETTA [Suspect]
     Indication: TYPE 2 DIABETES MELLITUS
     Dosage: 5 UG, 2/D, SUBCUTANEOUS ; 10 UG, 2/D, SUBCUTANEOUS
     Route: 058
     Dates: start: 20050801, end: 20050901
  2. BYETTA [Suspect]
     Indication: TYPE 2 DIABETES MELLITUS
     Dosage: 5 UG, 2/D, SUBCUTANEOUS ; 10 UG, 2/D, SUBCUTANEOUS
     Route: 058
     Dates: start: 20050901
  3. METFORMIN HCL [Concomitant]
  4. ACTOS /USA/ (PIOGLITAZONE HYDROCHLORIDE) [Concomitant]
  5. GLIPIZIDE [Concomitant]
  6. GLIPIZIDE XL (GLIPIZIDE) [Concomitant]
  7. COZAAR [Concomitant]
  8. NEXIUM [Concomitant]

REACTIONS (14)
  - BLOOD GLUCOSE DECREASED [None]
  - BLOOD GLUCOSE INCREASED [None]
  - COUGH [None]
  - DIARRHOEA [None]
  - DIZZINESS [None]
  - HUNGER [None]
  - INFECTION [None]
  - NASAL CONGESTION [None]
  - NAUSEA [None]
  - PHARYNGOLARYNGEAL PAIN [None]
  - PYREXIA [None]
  - UPPER RESPIRATORY TRACT CONGESTION [None]
  - UPPER RESPIRATORY TRACT INFECTION [None]
  - VOMITING [None]
